FAERS Safety Report 23078067 (Version 1)
Quarter: 2023Q4

REPORT INFORMATION
  Report Type: Spontaneous
  Country: HN (occurrence: HN)
  Receive Date: 20231018
  Receipt Date: 20231018
  Transmission Date: 20240109
  Serious: Yes (Hospitalization, Other)
  Sender: FDA-Public Use
  Company Number: HN-002147023-NVSC2021HN096634

PATIENT
  Sex: Female

DRUGS (1)
  1. GLIVEC [Suspect]
     Active Substance: IMATINIB MESYLATE
     Indication: Gastrointestinal stromal tumour
     Dosage: 400 MG (1 X 400MG)
     Route: 065

REACTIONS (4)
  - Nephrolithiasis [Recovering/Resolving]
  - Blood cholesterol increased [Unknown]
  - Blood uric acid increased [Unknown]
  - Hepatic lesion [Unknown]
